FAERS Safety Report 6539535-4 (Version None)
Quarter: 2010Q1

REPORT INFORMATION
  Report Type: 
  Country: None (occurrence: None)
  Receive Date: 20100115
  Receipt Date: 20100104
  Transmission Date: 20100710
  Serious: Yes (Other)
  Sender: FDA-Public Use
  Company Number: B0600496A

PATIENT

DRUGS (1)
  1. TOPOTECAN [Suspect]
     Indication: MALIGNANT GLIOMA
     Route: 065

REACTIONS (2)
  - CEREBRAL DISORDER [None]
  - DRUG TOXICITY [None]
